FAERS Safety Report 11201057 (Version 3)
Quarter: 2015Q3

REPORT INFORMATION
  Report Type: Spontaneous
  Country: BE (occurrence: BE)
  Receive Date: 20150619
  Receipt Date: 20150811
  Transmission Date: 20151125
  Serious: Yes (Death, Hospitalization)
  Sender: FDA-Public Use
  Company Number: BE-AMGEN-BELSP2015058612

PATIENT
  Age: 80 Year
  Sex: Female
  Weight: 65 kg

DRUGS (13)
  1. ALENDRONATE [Concomitant]
     Active Substance: ALENDRONATE SODIUM
     Dosage: 70 MG, QWK
     Route: 048
  2. AMLODIPINE [Concomitant]
     Active Substance: AMLODIPINE BESYLATE
     Dosage: 20 MG, QWK
     Route: 048
  3. BONIVA [Concomitant]
     Active Substance: IBANDRONATE SODIUM
     Dosage: 5 MG, QWK
     Route: 048
  4. DAFALGAN [Concomitant]
     Active Substance: ACETAMINOPHEN
     Dosage: 2 G, UNK
  5. D VITAL                            /00944201/ [Concomitant]
     Dosage: 1000/880 E
  6. DIOVAN [Concomitant]
     Active Substance: VALSARTAN
     Dosage: 100 MG, UNK
  7. LANTUS [Concomitant]
     Active Substance: INSULIN GLARGINE
  8. ELIQUIS [Concomitant]
     Active Substance: APIXABAN
  9. CORNEO [Concomitant]
     Dosage: 16 G, QWK
     Route: 048
  10. ALDACTONE [Concomitant]
     Active Substance: SPIRONOLACTONE
     Dosage: 25 MG, UNK
  11. NPLATE [Suspect]
     Active Substance: ROMIPLOSTIM
     Indication: IMMUNE THROMBOCYTOPENIC PURPURA
     Dosage: UNK UNK, QWK
     Route: 058
     Dates: start: 20150310, end: 20150408
  12. NOVORAPID [Concomitant]
     Active Substance: INSULIN ASPART
  13. LANOXIN [Concomitant]
     Active Substance: DIGOXIN

REACTIONS (1)
  - Intestinal ischaemia [Fatal]

NARRATIVE: CASE EVENT DATE: 20150408
